FAERS Safety Report 25338849 (Version 5)
Quarter: 2025Q3

REPORT INFORMATION
  Report Type: Report from Study
  Country: US (occurrence: US)
  Receive Date: 20250520
  Receipt Date: 20250912
  Transmission Date: 20251020
  Serious: Yes (Other)
  Sender: ABBVIE
  Company Number: US-ABBVIE-6287628

PATIENT
  Sex: Male

DRUGS (2)
  1. LUPRON [Suspect]
     Active Substance: LEUPROLIDE ACETATE
     Indication: Product used for unknown indication
     Route: 065
  2. RINVOQ [Suspect]
     Active Substance: UPADACITINIB
     Indication: Psoriatic arthropathy
     Route: 048
     Dates: start: 20241201

REACTIONS (11)
  - Prostate cancer [Not Recovered/Not Resolved]
  - Mental disorder [Not Recovered/Not Resolved]
  - Psoriatic arthropathy [Recovering/Resolving]
  - Gait disturbance [Unknown]
  - Skin fissures [Recovering/Resolving]
  - Skin haemorrhage [Recovering/Resolving]
  - Skin exfoliation [Recovering/Resolving]
  - Rash papular [Recovering/Resolving]
  - Onychomadesis [Recovering/Resolving]
  - Depression [Recovering/Resolving]
  - Erythema [Not Recovered/Not Resolved]
